FAERS Safety Report 12622100 (Version 1)
Quarter: 2016Q3

REPORT INFORMATION
  Report Type: Spontaneous
  Country: US (occurrence: US)
  Receive Date: 20160804
  Receipt Date: 20160804
  Transmission Date: 20161109
  Serious: No
  Sender: FDA-Public Use
  Company Number: US-ANACOR-2016ANA00187

PATIENT
  Age: 78 Year
  Sex: Male
  Weight: 82.54 kg

DRUGS (4)
  1. SYNTHROID [Concomitant]
     Active Substance: LEVOTHYROXINE SODIUM
     Dosage: 0.15 UNK, 1X/DAY
     Dates: start: 1986
  2. KERYDIN [Suspect]
     Active Substance: TAVABOROLE
     Indication: ONYCHOMYCOSIS
     Dosage: A DROP OR TWO ON EACH
     Route: 061
     Dates: start: 20160601, end: 20160606
  3. ^NORSTAN^ (BLOOD PRESSURE MEDICATION) [Concomitant]
     Dosage: UNK, 1X/DAY
     Dates: start: 201604
  4. CRESTOR [Concomitant]
     Active Substance: ROSUVASTATIN CALCIUM
     Dosage: UNK MG, UNK
     Dates: start: 201604

REACTIONS (5)
  - Hypersensitivity [Recovering/Resolving]
  - Skin swelling [Recovering/Resolving]
  - Petechiae [Recovering/Resolving]
  - Rash erythematous [Recovering/Resolving]
  - Rash pruritic [Recovering/Resolving]

NARRATIVE: CASE EVENT DATE: 201606
